FAERS Safety Report 6286414-6 (Version None)
Quarter: 2009Q3

REPORT INFORMATION
  Report Type: 
  Country: None (occurrence: None)
  Receive Date: 20090727
  Receipt Date: 20090727
  Transmission Date: 20100115
  Serious: No
  Sender: FDA-Public Use
  Company Number: None

PATIENT

DRUGS (3)
  1. VYTORIN [Suspect]
     Dosage: 10/40 MG DAILY ORAL
     Route: 048
  2. MICARDIS [Concomitant]
  3. PRILOSEC [Concomitant]

REACTIONS (2)
  - ARTHRALGIA [None]
  - MYALGIA [None]
